FAERS Safety Report 9133537 (Version 1)
Quarter: 2013Q1

REPORT INFORMATION
  Report Type: Spontaneous
  Country: US (occurrence: US)
  Receive Date: 20130124
  Receipt Date: 20130124
  Transmission Date: 20140127
  Serious: Yes (Hospitalization)
  Sender: FDA-Public Use
  Company Number: US-BRACCO-007697

PATIENT
  Age: 80 Year
  Sex: Female

DRUGS (3)
  1. MULTIHANCE [Suspect]
     Indication: PRODUCT USED FOR UNKNOWN INDICATION
     Route: 042
     Dates: start: 20120213, end: 20120213
  2. MULTIHANCE [Suspect]
     Indication: NUCLEAR MAGNETIC RESONANCE IMAGING BRAIN
     Route: 042
     Dates: start: 20120213, end: 20120213
  3. MULTIHANCE [Suspect]
     Indication: ARTERIOGRAM CAROTID
     Route: 042
     Dates: start: 20120213, end: 20120213

REACTIONS (2)
  - Blood pressure increased [Recovered/Resolved]
  - Feeling abnormal [Recovered/Resolved]
